FAERS Safety Report 18312167 (Version 1)
Quarter: 2020Q3

REPORT INFORMATION
  Report Type: Spontaneous
  Country: US (occurrence: US)
  Receive Date: 20200925
  Receipt Date: 20200925
  Transmission Date: 20201103
  Serious: No
  Sender: FDA-Public Use
  Company Number: US-SA-2020SA259817

PATIENT

DRUGS (1)
  1. LANTUS [Suspect]
     Active Substance: INSULIN GLARGINE
     Dosage: 35 UNITS IN THE MORNING, AND A SLIDING SCALE BASED ON HER BLOOD SUGAR IN THE EVENING
     Route: 065

REACTIONS (1)
  - Inappropriate schedule of product administration [Unknown]
